FAERS Safety Report 4285348-6 (Version None)
Quarter: 2004Q1

REPORT INFORMATION
  Report Type: 
  Country: None (occurrence: None)
  Receive Date: 20040203
  Receipt Date: 20040203
  Transmission Date: 20041129
  Serious: Yes (Hospitalization)
  Sender: FDA-Public Use
  Company Number: None

PATIENT
  Sex: Female

DRUGS (10)
  1. REGULAR INSULIN [Suspect]
     Indication: DIABETES MELLITUS
     Dosage: 16 U 9AM 12 U 1 PM
  2. LANTUS [Suspect]
     Indication: DIABETES MELLITUS
     Dosage: 12 U 5 PM 70 U 9 PM
  3. CARBIDOPA AND LEVODOPA [Concomitant]
  4. DOCUSATE [Concomitant]
  5. ENALAPRIL [Concomitant]
  6. ALENDRONATE SODIUM [Concomitant]
  7. HYDROCHLOROTHIAZIDE [Concomitant]
  8. METFORMIN HCL [Concomitant]
  9. NIFEDIPINE [Concomitant]
  10. NEURONTIN [Concomitant]

REACTIONS (7)
  - BODY TEMPERATURE INCREASED [None]
  - DECREASED APPETITE [None]
  - FATIGUE [None]
  - HYPOGLYCAEMIA [None]
  - NIGHT SWEATS [None]
  - PRODUCTIVE COUGH [None]
  - UPPER RESPIRATORY TRACT INFECTION [None]
